FAERS Safety Report 4388333-9 (Version None)
Quarter: 2004Q2

REPORT INFORMATION
  Report Type: 
  Country: None (occurrence: None)
  Receive Date: 20040625
  Receipt Date: 20040618
  Transmission Date: 20050107
  Serious: Yes (Other)
  Sender: FDA-Public Use
  Company Number: HQWYE528421JUN04

PATIENT
  Age: 25 Year
  Sex: Female

DRUGS (1)
  1. EFFEXOR XR [Suspect]
     Indication: MAJOR DEPRESSION
     Dosage: 150 MG 2X PER 1 DAY ORAL
     Route: 048
     Dates: start: 20040301

REACTIONS (3)
  - DRUG INEFFECTIVE [None]
  - FEELING GUILTY [None]
  - SUICIDAL IDEATION [None]
